FAERS Safety Report 14149850 (Version 1)
Quarter: 2017Q4

REPORT INFORMATION
  Report Type: Report from Study
  Country: CN (occurrence: CN)
  Receive Date: 20171101
  Receipt Date: 20171101
  Transmission Date: 20180321
  Serious: Yes (Death, Other)
  Sender: FDA-Public Use
  Company Number: CN-BAYER-2017-208379

PATIENT
  Age: 50 Year
  Sex: Female

DRUGS (6)
  1. ASPIRIN. [Suspect]
     Active Substance: ASPIRIN
     Indication: ANTIPLATELET THERAPY
     Dosage: 100 MG, UNK
  2. HEPARIN [Concomitant]
     Active Substance: HEPARIN SODIUM
     Indication: ANTICOAGULANT THERAPY
     Dosage: 100 IU/KG, UNK ANTICOAGULATED WITH INITIAL BOLUS AFTER DEPLOYMENT OF THE FIRST STENT
     Route: 040
  3. CLOPIDOGREL [Interacting]
     Active Substance: CLOPIDOGREL BISULFATE
     Indication: ANTIPLATELET THERAPY
     Dosage: 300 MG, UNK LOADING DOSE IMMEDIATELY AFTER THE PROCEDURE
  4. CLOPIDOGREL [Interacting]
     Active Substance: CLOPIDOGREL BISULFATE
     Indication: ANTIPLATELET THERAPY
     Dosage: 75 MG, UNK CONTINUED POSTOPERATIVELY
  5. CLOPIDOGREL [Interacting]
     Active Substance: CLOPIDOGREL BISULFATE
     Indication: ANTIPLATELET THERAPY
     Dosage: 100 MG, UNK
  6. HEPARIN [Concomitant]
     Active Substance: HEPARIN SODIUM
     Indication: ANTICOAGULANT THERAPY
     Dosage: 10 IU/KG, UNK

REACTIONS (3)
  - Labelled drug-drug interaction medication error [Fatal]
  - Drug administration error [Fatal]
  - Cerebral haemorrhage [Fatal]
